FAERS Safety Report 4506946-8 (Version None)
Quarter: 2004Q4

REPORT INFORMATION
  Report Type: 
  Country: None (occurrence: None)
  Receive Date: 20041117
  Receipt Date: 20041105
  Transmission Date: 20050328
  Serious: Yes (Other)
  Sender: FDA-Public Use
  Company Number: 2004-11-0003

PATIENT
  Age: 19 Year
  Sex: Male

DRUGS (1)
  1. PROGLYCEM [Suspect]
     Indication: HYPOGLYCAEMIA
     Dosage: 150MG QE

REACTIONS (3)
  - GASTRIC HYPERMOTILITY [None]
  - HIATUS HERNIA [None]
  - HYPERCHLORHYDRIA [None]
